FAERS Safety Report 9014175 (Version 1)
Quarter: 2013Q1

REPORT INFORMATION
  Report Type: Spontaneous
  Country: SE (occurrence: SE)
  Receive Date: 20130115
  Receipt Date: 20130115
  Transmission Date: 20140127
  Serious: Yes (Other)
  Sender: FDA-Public Use
  Company Number: PHHY2013SE003234

PATIENT
  Age: 67 Year
  Sex: Male

DRUGS (1)
  1. SIMVASTATIN SANDOZ [Suspect]
     Route: 048
     Dates: end: 20120828

REACTIONS (3)
  - Rhabdomyolysis [Unknown]
  - Renal failure acute [Unknown]
  - Acute hepatic failure [Unknown]
